FAERS Safety Report 5379761-3 (Version None)
Quarter: 2007Q2

REPORT INFORMATION
  Report Type: 
  Country: None (occurrence: None)
  Receive Date: 20070530
  Receipt Date: 20070222
  Transmission Date: 20071010
  Serious: No
  Sender: FDA-Public Use
  Company Number: 2007PV030635

PATIENT
  Age: 66 Year
  Sex: Female

DRUGS (3)
  1. BYETTA [Suspect]
     Indication: GLUCOSE TOLERANCE IMPAIRED
     Dosage: 5 MCG;BID;SC
     Route: 058
     Dates: start: 20070212
  2. AVICILE [Concomitant]
  3. DEPRESSION MEDICATIONS [Concomitant]

REACTIONS (3)
  - DEPRESSION [None]
  - FEELING JITTERY [None]
  - TREMOR [None]
